FAERS Safety Report 13199416 (Version 1)
Quarter: 2017Q1

REPORT INFORMATION
  Report Type: Spontaneous
  Country: US (occurrence: US)
  Receive Date: 20170208
  Receipt Date: 20170208
  Transmission Date: 20170428
  Serious: No
  Sender: FDA-Public Use
  Company Number: US-ELI_LILLY_AND_COMPANY-US201608000675

PATIENT
  Sex: Female

DRUGS (5)
  1. LEXAPRO [Concomitant]
     Active Substance: ESCITALOPRAM OXALATE
     Indication: DEPRESSION
     Dosage: UNK, UNKNOWN
     Route: 065
  2. CYMBALTA [Suspect]
     Active Substance: DULOXETINE HYDROCHLORIDE
     Indication: ANXIETY
     Dosage: 60 MG, UNKNOWN
     Route: 065
     Dates: start: 20051102
  3. LEXAPRO [Concomitant]
     Active Substance: ESCITALOPRAM OXALATE
     Dosage: 20 MG, QD
     Route: 065
  4. CYMBALTA [Suspect]
     Active Substance: DULOXETINE HYDROCHLORIDE
     Dosage: 90 MG, QD
     Route: 065
     Dates: start: 2013
  5. CYMBALTA [Suspect]
     Active Substance: DULOXETINE HYDROCHLORIDE
     Indication: DEPRESSION
     Dosage: 30 MG, UNKNOWN
     Route: 065
     Dates: start: 20050920

REACTIONS (28)
  - Dysphoria [Unknown]
  - Confusional state [Unknown]
  - Disturbance in attention [Unknown]
  - Lethargy [Unknown]
  - Crying [Unknown]
  - Nausea [Unknown]
  - Hyperhidrosis [Unknown]
  - Anger [Unknown]
  - Panic disorder [Unknown]
  - Dizziness [Unknown]
  - Agitation [Unknown]
  - Decreased appetite [Unknown]
  - Anxiety [Unknown]
  - Sensory disturbance [Unknown]
  - Tremor [Unknown]
  - Weight decreased [Unknown]
  - Malaise [Unknown]
  - Vertigo [Unknown]
  - Drug withdrawal syndrome [Unknown]
  - Irritability [Unknown]
  - Headache [Unknown]
  - Palpitations [Unknown]
  - Amnesia [Unknown]
  - Paraesthesia [Unknown]
  - Fatigue [Unknown]
  - Insomnia [Unknown]
  - Affect lability [Unknown]
  - Hypomania [Unknown]
